FAERS Safety Report 7822954-3 (Version None)
Quarter: 2011Q4

REPORT INFORMATION
  Report Type: 
  Country: None (occurrence: None)
  Receive Date: 20111018
  Receipt Date: 20100826
  Transmission Date: 20120403
  Serious: No
  Sender: FDA-Public Use
  Company Number: US-ASTRAZENECA-2010SE40331

PATIENT
  Age: 23787 Day
  Sex: Female
  Weight: 103.9 kg

DRUGS (8)
  1. FISH OIL [Concomitant]
     Route: 048
  2. NEXIUM [Concomitant]
     Route: 048
  3. LOVASTATIN [Concomitant]
     Indication: BLOOD CHOLESTEROL
     Route: 048
  4. ASPIRIN [Concomitant]
     Route: 048
  5. DIOVAN [Concomitant]
     Indication: HYPERTENSION
     Route: 048
  6. CALTRATE+D [Concomitant]
     Route: 048
  7. SYMBICORT [Suspect]
     Indication: DYSPNOEA
     Dosage: 160 TWO PUFFS BID
     Route: 055
     Dates: start: 20100824
  8. CPAP MACHINE [Concomitant]
     Dosage: AT NIGHT

REACTIONS (7)
  - DRUG INEFFECTIVE [None]
  - DIARRHOEA [None]
  - BLOOD PRESSURE INCREASED [None]
  - BRONCHIAL SECRETION RETENTION [None]
  - DRY MOUTH [None]
  - PULMONARY CONGESTION [None]
  - GASTRIC DISORDER [None]
